FAERS Safety Report 6238788-X (Version None)
Quarter: 2009Q2

REPORT INFORMATION
  Report Type: 
  Country: None (occurrence: None)
  Receive Date: 20090622
  Receipt Date: 20090615
  Transmission Date: 20091009
  Serious: Yes (Hospitalization)
  Sender: FDA-Public Use
  Company Number: US-WATSON-2009-04462

PATIENT
  Age: 55 Year
  Sex: Male

DRUGS (5)
  1. TRAZODONE HYDROCHLORIDE [Suspect]
     Indication: MAJOR DEPRESSION
     Dosage: UNK
     Route: 048
  2. TRAZODONE HYDROCHLORIDE [Suspect]
     Indication: INSOMNIA
  3. TRAMADOL HCL [Suspect]
     Indication: ARTHRALGIA
     Dosage: UNK
     Route: 048
  4. ZOLOFT [Suspect]
     Indication: MAJOR DEPRESSION
     Dosage: UNK
     Route: 048
  5. ZOLOFT [Suspect]
     Indication: INSOMNIA

REACTIONS (3)
  - DRUG ABUSE [None]
  - DRUG INTERACTION [None]
  - SEROTONIN SYNDROME [None]
